FAERS Safety Report 6146526-4 (Version None)
Quarter: 2009Q2

REPORT INFORMATION
  Report Type: 
  Country: None (occurrence: None)
  Receive Date: 20090407
  Receipt Date: 20090326
  Transmission Date: 20091009
  Serious: Yes (Hospitalization)
  Sender: FDA-Public Use
  Company Number: JP-PFIZER INC-2009193151

PATIENT

DRUGS (6)
  1. LIPITOR [Suspect]
     Indication: HYPERCHOLESTEROLAEMIA
     Dosage: 10 MG, UNK
     Route: 048
     Dates: start: 20081127, end: 20090114
  2. PANALDINE [Suspect]
     Dosage: 200 MG, UNK
     Route: 048
     Dates: start: 20081127, end: 20090114
  3. GASTER [Concomitant]
     Dosage: 10 MG, UNK
     Dates: start: 20080101, end: 20090114
  4. IMIDAPRIL HYDROCHLORIDE [Concomitant]
     Dosage: UNK
     Route: 048
     Dates: start: 20081127, end: 20090114
  5. MAINTATE [Concomitant]
     Dosage: UNK
     Route: 048
     Dates: start: 20081129, end: 20090114
  6. FERROUS FUMARATE [Concomitant]
     Dosage: UNK
     Dates: start: 20081212, end: 20090114

REACTIONS (1)
  - LIVER DISORDER [None]
